FAERS Safety Report 18564850 (Version 5)
Quarter: 2022Q1

REPORT INFORMATION
  Report Type: Spontaneous
  Country: US (occurrence: US)
  Receive Date: 20201201
  Receipt Date: 20220207
  Transmission Date: 20220423
  Serious: No
  Sender: FDA-Public Use
  Company Number: US-PFIZER INC-2020463360

PATIENT

DRUGS (1)
  1. BICILLIN L-A [Suspect]
     Active Substance: PENICILLIN G BENZATHINE
     Dosage: UNK

REACTIONS (3)
  - Injury associated with device [Unknown]
  - Accidental exposure to product [Unknown]
  - Device issue [Unknown]
